FAERS Safety Report 18631234 (Version 1)
Quarter: 2020Q4

REPORT INFORMATION
  Report Type: Spontaneous
  Country: US (occurrence: US)
  Receive Date: 20201217
  Receipt Date: 20201217
  Transmission Date: 20210114
  Serious: Yes (Hospitalization, Other)
  Sender: FDA-Public Use
  Company Number: US-009507513-2012USA006202

PATIENT
  Age: 71 Year
  Sex: Female
  Weight: 104 kg

DRUGS (6)
  1. NOXAFIL [Suspect]
     Active Substance: POSACONAZOLE
     Indication: ANTIFUNGAL PROPHYLAXIS
     Dosage: 300 MILLIGRAM, QD
     Dates: start: 20200909, end: 20201120
  2. ALLOPURINOL. [Concomitant]
     Active Substance: ALLOPURINOL
     Dosage: UNK
     Dates: start: 20200909
  3. FLOTETUZUMAB. [Suspect]
     Active Substance: FLOTETUZUMAB
     Indication: ACUTE MYELOID LEUKAEMIA
     Dosage: MULTI-STEP LEAD IN DOSE UP TO 500 NG/KG/DAY
     Route: 042
     Dates: start: 20200909
  4. LEVAQUIN [Concomitant]
     Active Substance: LEVOFLOXACIN
     Dosage: UNK
     Dates: start: 20200909
  5. ACYCLOVIR. [Concomitant]
     Active Substance: ACYCLOVIR
     Dosage: UNK
     Dates: start: 20200909
  6. LEVOTHYROXINE SODIUM. [Concomitant]
     Active Substance: LEVOTHYROXINE SODIUM
     Dosage: UNK
     Dates: start: 1995

REACTIONS (21)
  - Cardiac tamponade [Not Recovered/Not Resolved]
  - Alanine aminotransferase increased [Not Recovered/Not Resolved]
  - Oedema peripheral [Not Recovered/Not Resolved]
  - Inferior vena cava dilatation [Unknown]
  - Left ventricular hypertrophy [Unknown]
  - Haemodynamic instability [Unknown]
  - Pericardial effusion [Not Recovered/Not Resolved]
  - Pericardial effusion [Recovered/Resolved]
  - Azotaemia [Not Recovered/Not Resolved]
  - Aspartate aminotransferase increased [Not Recovered/Not Resolved]
  - Ventricular hypokinesia [Unknown]
  - Capillary leak syndrome [Recovered/Resolved]
  - Hypotension [Recovered/Resolved]
  - Hyperglycaemia [Not Recovered/Not Resolved]
  - Diarrhoea [Recovered/Resolved]
  - Fatigue [Not Recovered/Not Resolved]
  - Dyspnoea [Not Recovered/Not Resolved]
  - Left atrial enlargement [Unknown]
  - Cytokine release syndrome [Recovered/Resolved]
  - Mitral valve incompetence [Unknown]
  - Left ventricular dysfunction [Unknown]

NARRATIVE: CASE EVENT DATE: 20201007
